FAERS Safety Report 10708780 (Version 9)
Quarter: 2015Q4

REPORT INFORMATION
  Report Type: Spontaneous
  Country: US (occurrence: US)
  Receive Date: 20150113
  Receipt Date: 20151002
  Transmission Date: 20160304
  Serious: Yes (Hospitalization, Other)
  Sender: FDA-Public Use
  Company Number: US-PFIZER INC-2015011969

PATIENT
  Age: 79 Year
  Sex: Male
  Weight: 98 kg

DRUGS (9)
  1. CARAFATE [Concomitant]
     Active Substance: SUCRALFATE
     Dosage: 1 G (BEFORE EACH MEAL)
     Route: 048
  2. SUTENT [Suspect]
     Active Substance: SUNITINIB MALATE
     Dosage: 37.5 MG, CYCLIC ( 28 DAYS ON/ 14 DAYS OFF)
     Dates: start: 20150422, end: 20150424
  3. GLYBURIDE. [Concomitant]
     Active Substance: GLYBURIDE
     Indication: DIABETES MELLITUS
     Dosage: UNK
     Dates: start: 2002, end: 201411
  4. SUTENT [Suspect]
     Active Substance: SUNITINIB MALATE
     Dosage: 37.5 MG, CYCLIC (28 DAYS ON AND 14 OFF)
     Dates: start: 20150205, end: 20150401
  5. MORPHINE [Concomitant]
     Active Substance: MORPHINE
  6. SUTENT [Suspect]
     Active Substance: SUNITINIB MALATE
     Indication: RENAL CANCER STAGE IV
     Dosage: 37.5 MG, CYCLIC
     Route: 048
     Dates: start: 20141030, end: 201411
  7. SUTENT [Suspect]
     Active Substance: SUNITINIB MALATE
     Dosage: 37.5 MG, CYCLIC (28 DAYS ON/ 14 DAYS OFF)
     Dates: start: 20150511, end: 20150801
  8. METFORMIN [Concomitant]
     Active Substance: METFORMIN HYDROCHLORIDE
     Indication: DIABETES MELLITUS
     Dosage: UNK
     Dates: start: 2002, end: 201411
  9. LANTUS [Concomitant]
     Active Substance: INSULIN GLARGINE
     Dosage: 22 IU, 1X/DAY

REACTIONS (20)
  - Nasopharyngitis [Unknown]
  - Dyspnoea [Unknown]
  - Blood creatinine increased [Unknown]
  - Lung disorder [Unknown]
  - Weight increased [Unknown]
  - Asthenia [Not Recovered/Not Resolved]
  - Decreased appetite [Not Recovered/Not Resolved]
  - Abdominal pain lower [Unknown]
  - Immune system disorder [Unknown]
  - Tumour pain [Unknown]
  - Dry mouth [Recovered/Resolved]
  - Ageusia [Not Recovered/Not Resolved]
  - Weight decreased [Recovered/Resolved]
  - Pain [Unknown]
  - Pneumonia [Unknown]
  - Dehydration [Unknown]
  - Increased upper airway secretion [Unknown]
  - Fatigue [Not Recovered/Not Resolved]
  - Dysgeusia [Unknown]
  - Laboratory test abnormal [Unknown]

NARRATIVE: CASE EVENT DATE: 201411
